FAERS Safety Report 9373787 (Version 1)
Quarter: 2013Q2

REPORT INFORMATION
  Report Type: Spontaneous
  Country: US (occurrence: US)
  Receive Date: 20130628
  Receipt Date: 20130628
  Transmission Date: 20140414
  Serious: Yes (Death, Hospitalization)
  Sender: FDA-Public Use
  Company Number: US-AMGEN-USASP2013044978

PATIENT
  Age: 88 Year
  Sex: Female

DRUGS (9)
  1. PROCRIT [Suspect]
     Indication: PRODUCT USED FOR UNKNOWN INDICATION
     Dosage: 40000 UNIT, QWK
     Route: 065
     Dates: start: 20120417, end: 2013
  2. FUROSEMIDE [Concomitant]
     Dosage: UNK
  3. LISINOPRIL [Concomitant]
     Dosage: UNK
  4. CELEXA                             /00582602/ [Concomitant]
     Dosage: UNK
  5. GABAPENTIN [Concomitant]
     Dosage: UNK
  6. FOLIC ACID [Concomitant]
     Dosage: UNK
  7. SIMVASTATIN [Concomitant]
     Dosage: UNK
  8. PERCOCET                           /00446701/ [Concomitant]
     Dosage: UNK
  9. LORAZEPAM [Concomitant]
     Dosage: UNK

REACTIONS (2)
  - Death [Fatal]
  - Cardiac disorder [Unknown]
